FAERS Safety Report 11662706 (Version 1)
Quarter: 2015Q4

REPORT INFORMATION
  Report Type: Spontaneous
  Country: US (occurrence: US)
  Receive Date: 20151027
  Receipt Date: 20151027
  Transmission Date: 20160304
  Serious: No
  Sender: FDA-Public Use
  Company Number: US-MEDA-2013040042

PATIENT
  Age: 18 Year
  Sex: Female

DRUGS (2)
  1. DYMISTA [Suspect]
     Active Substance: AZELASTINE HYDROCHLORIDE\FLUTICASONE PROPIONATE
     Indication: SEASONAL ALLERGY
  2. AFRIN [Concomitant]
     Active Substance: OXYMETAZOLINE

REACTIONS (3)
  - Rhinalgia [Unknown]
  - Nasal dryness [Unknown]
  - Nasal discomfort [Unknown]
